FAERS Safety Report 9270675 (Version 1)
Quarter: 2013Q2

REPORT INFORMATION
  Report Type: Spontaneous
  Country: US (occurrence: US)
  Receive Date: 20130503
  Receipt Date: 20130503
  Transmission Date: 20140414
  Serious: Yes (Other)
  Sender: FDA-Public Use
  Company Number: US-PFIZER INC-2013135609

PATIENT
  Age: 43 Year
  Sex: Female
  Weight: 59 kg

DRUGS (1)
  1. LEVOXYL [Suspect]
     Indication: THYROID CANCER
     Dosage: 112 UG, 1X/DAY
     Dates: start: 2003

REACTIONS (1)
  - Bladder cancer [Unknown]
